FAERS Safety Report 26175289 (Version 1)
Quarter: 2025Q4

REPORT INFORMATION
  Report Type: Spontaneous
  Country: HK (occurrence: HK)
  Receive Date: 20251218
  Receipt Date: 20251218
  Transmission Date: 20260117
  Serious: Yes (Other)
  Sender: TEVA
  Company Number: HK-TEVA-VS-3402649

PATIENT
  Age: 15 Year
  Sex: Male

DRUGS (2)
  1. PREDNISOLONE [Suspect]
     Active Substance: PREDNISOLONE
     Indication: Hypersomnia-bulimia syndrome
     Route: 048
  2. METHYLPREDNISOLONE [Suspect]
     Active Substance: METHYLPREDNISOLONE
     Indication: Hypersomnia-bulimia syndrome
     Dosage: FOR 3 DAYS FOLLOWED BY A 4 WEEK COURSE
     Route: 042

REACTIONS (2)
  - Rebound effect [Unknown]
  - Off label use [Unknown]
